FAERS Safety Report 9128507 (Version 1)
Quarter: 2013Q1

REPORT INFORMATION
  Report Type: Spontaneous
  Country: US (occurrence: US)
  Receive Date: 20130228
  Receipt Date: 20130228
  Transmission Date: 20140127
  Serious: No
  Sender: FDA-Public Use
  Company Number: US-GLAXOSMITHKLINE-A0999752A

PATIENT
  Age: 37 Year
  Sex: Female

DRUGS (9)
  1. IMITREX [Suspect]
     Indication: MIGRAINE
     Route: 058
  2. IMITREX [Suspect]
     Indication: MIGRAINE
     Route: 048
  3. IMITREX [Suspect]
     Indication: MIGRAINE
     Route: 045
  4. SUMATRIPTAN SUCCINATE [Suspect]
     Indication: MIGRAINE
     Route: 058
  5. DIURETIC [Concomitant]
  6. INSULIN [Concomitant]
  7. LASIX [Concomitant]
  8. PROZAC [Concomitant]
  9. NEURONTIN [Concomitant]

REACTIONS (3)
  - Injection site pain [Recovered/Resolved]
  - Injection site bruising [Recovered/Resolved]
  - Drug ineffective [Unknown]
